FAERS Safety Report 15896171 (Version 2)
Quarter: 2024Q4

REPORT INFORMATION
  Report Type: Spontaneous
  Country: AU (occurrence: AU)
  Receive Date: 20190131
  Receipt Date: 20241001
  Transmission Date: 20250115
  Serious: Yes (Other)
  Sender: MYLAN
  Company Number: AU-002147023-PHHY2018AU006245

PATIENT
  Age: 48 Year
  Sex: Male

DRUGS (6)
  1. CLOZARIL [Suspect]
     Active Substance: CLOZAPINE
     Indication: Schizophrenia
     Dosage: 25 MILLIGRAM, TID
     Route: 048
     Dates: start: 19980313
  2. CLOZARIL [Suspect]
     Active Substance: CLOZAPINE
     Dosage: 25 MILLIGRAM, PM
     Route: 048
  3. CLOZAPINE [Suspect]
     Active Substance: CLOZAPINE
     Indication: Schizophrenia
     Dosage: 25 MILLIGRAM, TID
     Route: 048
  4. CLOZAPINE [Suspect]
     Active Substance: CLOZAPINE
     Dosage: 50 MILLIGRAM
     Route: 065
  5. LEVOTHYROXINE [Concomitant]
     Active Substance: LEVOTHYROXINE
     Indication: Hypothyroidism
     Dosage: 50 MILLIGRAM, QD
     Route: 065
  6. PAMET [Concomitant]
     Indication: Product used for unknown indication
     Dosage: 20 MILLIGRAM, QD
     Route: 065

REACTIONS (6)
  - Respiratory tract infection [Recovering/Resolving]
  - Eosinophil count increased [Not Recovered/Not Resolved]
  - Leukocytosis [Recovering/Resolving]
  - Infection [Unknown]
  - Chronic sinusitis [Recovering/Resolving]
  - Inflammation [Unknown]

NARRATIVE: CASE EVENT DATE: 20171111
